FAERS Safety Report 7826140-2 (Version None)
Quarter: 2011Q4

REPORT INFORMATION
  Report Type: 
  Country: None (occurrence: None)
  Receive Date: 20111019
  Receipt Date: 20111010
  Transmission Date: 20120403
  Serious: Yes (Other)
  Sender: FDA-Public Use
  Company Number: US-ASTRAZENECA-2011SE58023

PATIENT
  Age: 49 Year
  Sex: Male
  Weight: 81.6 kg

DRUGS (17)
  1. SEROQUEL [Suspect]
     Dosage: 50 MG IN THE MORNING AND 100 MG IN THE EVENING
     Route: 048
  2. SEROQUEL [Suspect]
     Route: 048
  3. SEROQUEL [Suspect]
     Dosage: DAILY
     Route: 048
     Dates: start: 20060101
  4. SEROQUEL [Suspect]
     Dosage: DAILY
     Route: 048
     Dates: start: 20060101
  5. SEROQUEL [Suspect]
     Route: 048
     Dates: start: 20050101
  6. BICADINE [Concomitant]
     Indication: PAIN
  7. SEROQUEL [Suspect]
     Route: 048
  8. SEROQUEL [Suspect]
     Indication: DEPRESSION
     Route: 048
  9. SEROQUEL [Suspect]
     Dosage: 50 MG IN THE MORNING AND 100 MG IN THE EVENING
     Route: 048
  10. SEROQUEL [Suspect]
     Route: 048
  11. SEROQUEL [Suspect]
     Dosage: DAILY
     Route: 048
     Dates: start: 20060101
  12. XANEX [Concomitant]
     Indication: ANXIETY
  13. SEROQUEL [Suspect]
     Indication: BIPOLAR DISORDER
     Route: 048
  14. SEROQUEL [Suspect]
     Indication: SCHIZOPHRENIA
     Route: 048
  15. SEROQUEL [Suspect]
     Dosage: 50 MG IN THE MORNING AND 100 MG IN THE EVENING
     Route: 048
  16. SEROQUEL [Suspect]
     Route: 048
     Dates: start: 20050101
  17. SEROQUEL [Suspect]
     Route: 048
     Dates: start: 20050101

REACTIONS (6)
  - SUICIDAL BEHAVIOUR [None]
  - FATIGUE [None]
  - INSOMNIA [None]
  - NIGHTMARE [None]
  - DRUG INEFFECTIVE [None]
  - DRUG DOSE OMISSION [None]
